FAERS Safety Report 11719394 (Version 1)
Quarter: 2015Q4

REPORT INFORMATION
  Report Type: Other
  Country: GB (occurrence: GB)
  Receive Date: 20151110
  Receipt Date: 20151110
  Transmission Date: 20160304
  Serious: Yes (Hospitalization, Other)
  Sender: FDA-Public Use
  Company Number: GB-MYLANLABS-2015M1037480

PATIENT

DRUGS (7)
  1. FROVATRIPTANUM [Concomitant]
     Dosage: UNK
  2. SYMBICORT [Concomitant]
     Active Substance: BUDESONIDE\FORMOTEROL FUMARATE DIHYDRATE
     Dosage: UNK
  3. CAFFEINE. [Concomitant]
     Active Substance: CAFFEINE
     Dosage: UNK
  4. MIRTAZAPINE. [Suspect]
     Active Substance: MIRTAZAPINE
     Indication: ANXIETY
     Dosage: 20 MG, QD |(NIGHTLY)
     Route: 048
     Dates: start: 200911, end: 201402
  5. PIZOTIFEN [Suspect]
     Active Substance: PIZOTYLINE
     Indication: MIGRAINE
     Dosage: CAN^T REMEMBER
     Route: 048
  6. PARACETAMOL [Concomitant]
     Active Substance: ACETAMINOPHEN
     Dosage: UNK
  7. VENTOLIN [Concomitant]
     Active Substance: ALBUTEROL SULFATE
     Dosage: UNK
     Route: 055

REACTIONS (15)
  - Dyspnoea [Unknown]
  - Anxiety [Recovered/Resolved]
  - Diplopia [Recovered/Resolved]
  - Abnormal weight gain [Recovered/Resolved]
  - Withdrawal syndrome [Recovered/Resolved]
  - Cholelithiasis [Recovered/Resolved]
  - Chromaturia [Recovered/Resolved]
  - Hyperacusis [Recovered/Resolved]
  - Liver injury [Recovered/Resolved]
  - Hallucination [Recovered/Resolved]
  - Decreased appetite [Recovered/Resolved]
  - Tremor [Recovered/Resolved]
  - Panic attack [Recovered/Resolved]
  - Jaundice cholestatic [Recovered/Resolved]
  - Sedation [Recovered/Resolved]

NARRATIVE: CASE EVENT DATE: 200911
